FAERS Safety Report 5522210-2 (Version None)
Quarter: 2007Q4

REPORT INFORMATION
  Report Type: 
  Country: None (occurrence: None)
  Receive Date: 20071120
  Receipt Date: 20071116
  Transmission Date: 20080405
  Serious: Yes (Other)
  Sender: FDA-Public Use
  Company Number: B0496131A

PATIENT
  Sex: Male

DRUGS (4)
  1. DILATREND [Suspect]
     Indication: DRUG USE FOR UNKNOWN INDICATION
     Dates: start: 20071105, end: 20071105
  2. COVERSYL [Concomitant]
  3. ZANTAC [Concomitant]
  4. VENTOLIN [Concomitant]

REACTIONS (3)
  - FOAMING AT MOUTH [None]
  - ILL-DEFINED DISORDER [None]
  - SOMNOLENCE [None]
